FAERS Safety Report 23391642 (Version 3)
Quarter: 2024Q2

REPORT INFORMATION
  Report Type: Spontaneous
  Country: US (occurrence: US)
  Receive Date: 20240111
  Receipt Date: 20240510
  Transmission Date: 20240716
  Serious: No
  Sender: FDA-Public Use
  Company Number: US-Blueprint Medicines Corporation-1938

PATIENT
  Age: 76 Year
  Sex: Female

DRUGS (1)
  1. AYVAKIT [Suspect]
     Active Substance: AVAPRITINIB
     Indication: Haematopoietic neoplasm
     Route: 065
     Dates: start: 20220418

REACTIONS (9)
  - Cystitis [Unknown]
  - Bladder hypertrophy [Unknown]
  - Urinary tract infection [Unknown]
  - Fatigue [Unknown]
  - Feeling cold [Unknown]
  - Weight increased [Unknown]
  - Laboratory test abnormal [Unknown]
  - Urine abnormality [Unknown]
  - Dysuria [Unknown]

NARRATIVE: CASE EVENT DATE: 20230301
